FAERS Safety Report 16232464 (Version 1)
Quarter: 2019Q2

REPORT INFORMATION
  Report Type: Spontaneous
  Country: IN (occurrence: IN)
  Receive Date: 20190424
  Receipt Date: 20190424
  Transmission Date: 20190711
  Serious: Yes (Hospitalization, Other)
  Sender: FDA-Public Use
  Company Number: IN-ALVOGEN-2019-ALVOGEN-098662

PATIENT
  Age: 30 Year
  Sex: Male

DRUGS (2)
  1. NEVIRAPINE. [Suspect]
     Active Substance: NEVIRAPINE
     Indication: HIV INFECTION
  2. NEVIRAPINE. [Suspect]
     Active Substance: NEVIRAPINE
     Indication: HIV INFECTION CDC GROUP IV SUBGROUP D
     Dosage: 200 MG AS A ONCE IN A DAY ADMINISTRATION FOR FIRST 2 WEEKS AND TWICE DAILY FROM THIRD WEEK ONWARDS.

REACTIONS (1)
  - Dermatitis exfoliative [Recovering/Resolving]
